FAERS Safety Report 17563878 (Version 2)
Quarter: 2020Q1

REPORT INFORMATION
  Report Type: Report from Study
  Country: None (occurrence: ES)
  Receive Date: 20200319
  Receipt Date: 20200326
  Transmission Date: 20200409
  Serious: Yes (Death)
  Sender: FDA-Public Use
  Company Number: ES-ABBVIE-20K-144-3244182-00

PATIENT
  Sex: Male

DRUGS (1)
  1. DUODOPA [Suspect]
     Active Substance: CARBIDOPA\LEVODOPA
     Indication: PARKINSON^S DISEASE
     Route: 050
     Dates: start: 20131113, end: 2020

REACTIONS (4)
  - General physical health deterioration [Fatal]
  - Device physical property issue [Unknown]
  - Cognitive disorder [Fatal]
  - Dysphagia [Fatal]
